FAERS Safety Report 9695208 (Version 1)
Quarter: 2013Q4

REPORT INFORMATION
  Report Type: Spontaneous
  Country: US (occurrence: US)
  Receive Date: 20131119
  Receipt Date: 20131119
  Transmission Date: 20140711
  Serious: Yes (Other)
  Sender: FDA-Public Use
  Company Number: US-WATSON-2013-20578

PATIENT
  Age: 46 Year
  Sex: Female

DRUGS (1)
  1. BUPROPION HYDROCHLORIDE (WATSON LABORATORIES) [Suspect]
     Indication: MENTAL DISORDER
     Dosage: 300 MG, DAILY
     Route: 048

REACTIONS (2)
  - Suicidal ideation [Not Recovered/Not Resolved]
  - Drug ineffective [Not Recovered/Not Resolved]
